FAERS Safety Report 23977289 (Version 1)
Quarter: 2024Q2

REPORT INFORMATION
  Report Type: Spontaneous
  Country: US (occurrence: None)
  Receive Date: 20240613
  Receipt Date: 20240613
  Transmission Date: 20240715
  Serious: No
  Sender: FDA-Public Use
  Company Number: None

PATIENT
  Sex: Female

DRUGS (2)
  1. TALTZ [Suspect]
     Active Substance: IXEKIZUMAB
     Indication: Psoriatic arthropathy
     Dosage: 160MG SQ??INJECT 2 PENS UNDER THE SKIN AT WEEK 0, THEN 1 PEN AT WEEKS 2, 4, 6, 8, 10, AND 12. THEN
     Route: 058
     Dates: start: 202406
  2. CIMIZA [Concomitant]

REACTIONS (3)
  - Nausea [None]
  - Fatigue [None]
  - Pain [None]
